FAERS Safety Report 10802590 (Version 1)
Quarter: 2015Q1

REPORT INFORMATION
  Report Type: Spontaneous
  Country: US (occurrence: US)
  Receive Date: 20150217
  Receipt Date: 20150217
  Transmission Date: 20150721
  Serious: Yes (Death, Hospitalization, Other)
  Sender: FDA-Public Use
  Company Number: US-009507513-1502USA005778

PATIENT
  Sex: Female
  Weight: 67.57 kg

DRUGS (3)
  1. JANUVIA [Suspect]
     Active Substance: SITAGLIPTIN PHOSPHATE
     Indication: TYPE 2 DIABETES MELLITUS
     Dosage: 100 MG, UNK
     Route: 048
     Dates: start: 20101015, end: 20110115
  2. BYETTA [Suspect]
     Active Substance: EXENATIDE
     Indication: TYPE 2 DIABETES MELLITUS
     Dosage: 12.-2.4 MGC
     Route: 058
     Dates: start: 20061108, end: 20100112
  3. TYLENOL [Concomitant]
     Active Substance: ACETAMINOPHEN
     Indication: PAIN
     Dosage: UNK
     Dates: start: 1996, end: 20140929

REACTIONS (57)
  - Adenocarcinoma pancreas [Unknown]
  - Pancreatic cyst [Unknown]
  - Cardiomyopathy [Unknown]
  - Diverticulum intestinal [Unknown]
  - Osteoporosis [Unknown]
  - Cardiac failure congestive [Not Recovered/Not Resolved]
  - Implantable defibrillator insertion [Unknown]
  - Myocardial infarction [Unknown]
  - Acute pulmonary oedema [Unknown]
  - Oesophageal dilation procedure [Unknown]
  - Haematoma [Unknown]
  - Fatigue [Unknown]
  - Alveolar lung disease [Unknown]
  - Pulmonary calcification [Unknown]
  - Hepatic congestion [Unknown]
  - Irritability [Unknown]
  - Gastritis [Unknown]
  - Fall [Unknown]
  - Spinal compression fracture [Unknown]
  - Multiple gated acquisition scan abnormal [Unknown]
  - Post procedural haematoma [Unknown]
  - Arthritis [Unknown]
  - Cardiac pacemaker insertion [Unknown]
  - Cardiomyopathy [Unknown]
  - Atrial fibrillation [Unknown]
  - Dysphagia [Not Recovered/Not Resolved]
  - Hypertension [Unknown]
  - Diarrhoea [Not Recovered/Not Resolved]
  - Cardiac failure congestive [Not Recovered/Not Resolved]
  - Osteopenia [Unknown]
  - Spinal osteoarthritis [Unknown]
  - Poor quality sleep [Unknown]
  - Ventricular tachycardia [Unknown]
  - Pleural effusion [Unknown]
  - Night sweats [Unknown]
  - Lung infiltration [Unknown]
  - Cardiac ablation [Unknown]
  - Atrial flutter [Unknown]
  - Seroma [Unknown]
  - Skin disorder [Not Recovered/Not Resolved]
  - Intervertebral disc operation [Unknown]
  - Acute pulmonary oedema [Unknown]
  - Hiatus hernia [Unknown]
  - Atelectasis [Unknown]
  - Coronary artery disease [Unknown]
  - Respiratory tract inflammation [Not Recovered/Not Resolved]
  - Spinal osteoarthritis [Unknown]
  - Type V hyperlipidaemia [Unknown]
  - Cardiac failure congestive [Not Recovered/Not Resolved]
  - Knee arthroplasty [Unknown]
  - Death [Fatal]
  - Pleural effusion [Unknown]
  - Osteoarthritis [Unknown]
  - Renal cyst [Unknown]
  - Anxiety [Unknown]
  - Drug ineffective [Unknown]
  - Back pain [Not Recovered/Not Resolved]

NARRATIVE: CASE EVENT DATE: 2010
